FAERS Safety Report 10137396 (Version 1)
Quarter: 2014Q2

REPORT INFORMATION
  Report Type: Spontaneous
  Country: US (occurrence: None)
  Receive Date: 20140428
  Receipt Date: 20140428
  Transmission Date: 20141212
  Serious: Yes (Other)
  Sender: FDA-Public Use
  Company Number: None

PATIENT
  Age: 54 Year
  Sex: Female
  Weight: 65.32 kg

DRUGS (1)
  1. XELODA 500 MG [Suspect]
     Indication: BREAST CANCER
     Route: 048
     Dates: start: 20140326, end: 20140401

REACTIONS (7)
  - Vomiting [None]
  - Diarrhoea [None]
  - Fatigue [None]
  - Liver function test abnormal [None]
  - Blood sodium decreased [None]
  - Drug ineffective [None]
  - Nausea [None]
